FAERS Safety Report 13588588 (Version 2)
Quarter: 2017Q2

REPORT INFORMATION
  Report Type: Report from Study
  Country: GR (occurrence: GR)
  Receive Date: 20170529
  Receipt Date: 20170607
  Transmission Date: 20170830
  Serious: Yes (Hospitalization, Other)
  Sender: FDA-Public Use
  Company Number: GR-AMGEN-GRCNI2017081119

PATIENT
  Age: 78 Year
  Sex: Male

DRUGS (6)
  1. ADALAT [Concomitant]
     Active Substance: NIFEDIPINE
     Dosage: 5 MG, QD
     Route: 048
     Dates: start: 20170525, end: 20170525
  2. APOTEL [Concomitant]
     Active Substance: ACETAMINOPHEN
     Dosage: 1000 MG, Q8H
     Route: 042
     Dates: start: 20170525, end: 20170526
  3. ZOMETA [Suspect]
     Active Substance: ZOLEDRONIC ACID
     Indication: PRODUCT USED FOR UNKNOWN INDICATION
     Dosage: UNK
     Route: 065
  4. IVOR [Concomitant]
     Active Substance: BEMIPARIN SODIUM
     Dosage: 3.5 MG, QD
     Route: 058
     Dates: start: 20170523, end: 20170527
  5. LUMAREN [Concomitant]
     Dosage: 50 MG, QD
     Route: 042
     Dates: start: 20170523, end: 20170527
  6. DENOSUMAB [Suspect]
     Active Substance: DENOSUMAB
     Indication: PRODUCT USED FOR UNKNOWN INDICATION
     Dosage: UNK
     Route: 065

REACTIONS (1)
  - Osteonecrosis of jaw [Not Recovered/Not Resolved]

NARRATIVE: CASE EVENT DATE: 20170523
